FAERS Safety Report 22322945 (Version 1)
Quarter: 2023Q2

REPORT INFORMATION
  Report Type: Spontaneous
  Country: RU (occurrence: RU)
  Receive Date: 20230516
  Receipt Date: 20230516
  Transmission Date: 20230721
  Serious: Yes (Hospitalization)
  Sender: FDA-Public Use
  Company Number: None

PATIENT
  Age: 1 Year
  Sex: Male
  Weight: 11 kg

DRUGS (1)
  1. FIASP [Suspect]
     Active Substance: INSULIN ASPART
     Indication: Type 1 diabetes mellitus
     Dosage: 12 IU, QD
     Route: 058
     Dates: start: 202302, end: 20230419

REACTIONS (2)
  - Drug ineffective [Recovering/Resolving]
  - Diabetic metabolic decompensation [Unknown]

NARRATIVE: CASE EVENT DATE: 20230401
